FAERS Safety Report 9355763 (Version 1)
Quarter: 2013Q2

REPORT INFORMATION
  Report Type: Spontaneous
  Country: US (occurrence: US)
  Receive Date: 20130619
  Receipt Date: 20130619
  Transmission Date: 20140414
  Serious: Yes (Other)
  Sender: FDA-Public Use
  Company Number: US-AMGEN-USASP2013042381

PATIENT
  Sex: Female

DRUGS (18)
  1. PROLIA [Suspect]
     Indication: BONE LOSS
     Dosage: UNK
     Dates: start: 20120702
  2. PROLIA [Suspect]
     Indication: OSTEOPOROSIS POSTMENOPAUSAL
  3. METOPROLOL [Concomitant]
  4. TRIAMTERENE [Concomitant]
  5. QVAR [Concomitant]
  6. MONTELUKAST [Concomitant]
  7. FLUTICASONE [Concomitant]
  8. LORAZEPAM [Concomitant]
  9. AMLODIPINE [Concomitant]
  10. NEXIUM                             /01479302/ [Concomitant]
  11. LETROZOLE [Concomitant]
  12. ACETAMINOPHEN AND CODEINE [Concomitant]
  13. CHOLESTYRAMINE [Concomitant]
  14. ZYRTEC [Concomitant]
  15. FOLIC ACID [Concomitant]
  16. VITAMIN B [Concomitant]
  17. VITAMIN D                          /00107901/ [Concomitant]
  18. CALCIUM PLUS VITAMIN D [Concomitant]

REACTIONS (5)
  - Ulcer haemorrhage [Not Recovered/Not Resolved]
  - Skin ulcer [Not Recovered/Not Resolved]
  - Skin warm [Not Recovered/Not Resolved]
  - Rash [Not Recovered/Not Resolved]
  - Loose tooth [Unknown]
